FAERS Safety Report 6047546-0 (Version None)
Quarter: 2009Q1

REPORT INFORMATION
  Report Type: 
  Country: None (occurrence: None)
  Receive Date: 20090123
  Receipt Date: 20090115
  Transmission Date: 20090719
  Serious: Yes (Other)
  Sender: FDA-Public Use
  Company Number: KR-RANBAXY-2009RR-20523

PATIENT
  Age: 78 Year
  Sex: Female

DRUGS (2)
  1. CEFAZOLIN [Suspect]
     Dosage: 1 G, UNK
     Route: 037
  2. OMNIPAQUE 140 [Concomitant]
     Dosage: 20 ML, UNK
     Route: 037

REACTIONS (1)
  - STATUS EPILEPTICUS [None]
